FAERS Safety Report 9882381 (Version 1)
Quarter: 2014Q1

REPORT INFORMATION
  Report Type: Spontaneous
  Country: GB (occurrence: GB)
  Receive Date: 20140207
  Receipt Date: 20140207
  Transmission Date: 20141002
  Serious: Yes (Other)
  Sender: FDA-Public Use
  Company Number: GB-GLAXOSMITHKLINE-B0966678A

PATIENT
  Age: 51 Year
  Sex: Female

DRUGS (4)
  1. CLENIL MODULITE [Suspect]
     Indication: ASTHMA
     Dosage: 1U TWICE PER DAY
     Route: 055
     Dates: start: 20120123
  2. AMLODIPINE [Concomitant]
     Dosage: 10MG PER DAY
  3. SERTRALINE [Concomitant]
     Dosage: 100MG PER DAY
     Route: 048
  4. VENTOLIN [Concomitant]
     Indication: ASTHMA
     Dosage: 2U FOUR TIMES PER DAY

REACTIONS (2)
  - Oral pain [Not Recovered/Not Resolved]
  - Glossodynia [Not Recovered/Not Resolved]
